FAERS Safety Report 5011335-6 (Version None)
Quarter: 2006Q2

REPORT INFORMATION
  Report Type: 
  Country: None (occurrence: None)
  Receive Date: 20060404
  Receipt Date: 20060109
  Transmission Date: 20061013
  Serious: No
  Sender: FDA-Public Use
  Company Number: US200601001561

PATIENT
  Age: 75 Year
  Sex: Female

DRUGS (11)
  1. CYMBALTA [Suspect]
     Indication: DEPRESSION
     Dosage: 60 MG
     Dates: start: 20050524, end: 20050705
  2. ARICEPT /JPN/ (DONEPEZIL HYDROCHLORIDE) [Concomitant]
  3. K-DUR 10 [Concomitant]
  4. SYNTHROID (LEVOTYROXINE SODIUM) [Concomitant]
  5. CARDIZEM [Concomitant]
  6. XANAX /USA/ (ALPRAZOLAM) [Concomitant]
  7. PREVACID [Concomitant]
  8. LASIX [Concomitant]
  9. DURAGESIC-100 [Concomitant]
  10. TRICOR [Concomitant]
  11. FOSAMAX /ITA/ (ALENDRONATE SODIUM) [Concomitant]

REACTIONS (1)
  - BLOOD PRESSURE INCREASED [None]
